FAERS Safety Report 10056300 (Version 2)
Quarter: 2014Q2

REPORT INFORMATION
  Report Type: Spontaneous
  Country: US (occurrence: US)
  Receive Date: 20140403
  Receipt Date: 20140403
  Transmission Date: 20141212
  Serious: No
  Sender: FDA-Public Use
  Company Number: US-009507513-1404USA002364

PATIENT
  Sex: Female

DRUGS (2)
  1. JANUVIA [Suspect]
     Dosage: UNK
     Route: 048
  2. JANUVIA [Suspect]
     Dosage: UNK
     Route: 048

REACTIONS (5)
  - Drug dispensing error [Unknown]
  - Product tampering [Unknown]
  - Suspected counterfeit product [Unknown]
  - Product origin unknown [Unknown]
  - No adverse event [Unknown]
